FAERS Safety Report 12787767 (Version 1)
Quarter: 2016Q3

REPORT INFORMATION
  Report Type: Spontaneous
  Country: BR (occurrence: BR)
  Receive Date: 20160928
  Receipt Date: 20160928
  Transmission Date: 20161109
  Serious: Yes (Other)
  Sender: FDA-Public Use
  Company Number: BR-GLAXOSMITHKLINE-BR2016GSK140052

PATIENT
  Sex: Male
  Weight: 63 kg

DRUGS (4)
  1. COMBODART [Suspect]
     Active Substance: DUTASTERIDE\TAMSULOSIN
     Indication: PROSTATIC DISORDER
     Dosage: 1 DF, QD
     Route: 048
  2. NASONEX [Concomitant]
     Active Substance: MOMETASONE FUROATE
     Indication: PRODUCT USED FOR UNKNOWN INDICATION
  3. PANTOPRAZOLE [Concomitant]
     Active Substance: PANTOPRAZOLE SODIUM
     Indication: PRODUCT USED FOR UNKNOWN INDICATION
     Route: 048
  4. BICARBONATE [Concomitant]
     Active Substance: BICARBONATE ION
     Indication: DYSPEPSIA
     Route: 048

REACTIONS (5)
  - Drug ineffective [Recovered/Resolved]
  - Dizziness [Not Recovered/Not Resolved]
  - Product availability issue [Unknown]
  - Urinary retention [Recovering/Resolving]
  - Product use issue [Recovered/Resolved]
